FAERS Safety Report 9241553 (Version 1)
Quarter: 2013Q2

REPORT INFORMATION
  Report Type: Report from Study
  Country: CA (occurrence: CA)
  Receive Date: 20130419
  Receipt Date: 20130419
  Transmission Date: 20140414
  Serious: Yes (Other)
  Sender: FDA-Public Use
  Company Number: CA-JNJFOC-20130407089

PATIENT
  Sex: 0

DRUGS (3)
  1. REMICADE [Suspect]
     Indication: PRODUCT USED FOR UNKNOWN INDICATION
     Route: 042
  2. METHOTREXATE [Concomitant]
     Route: 065
     Dates: end: 201210
  3. METHOTREXATE [Concomitant]
     Route: 065
     Dates: start: 201303

REACTIONS (1)
  - Diffuse large B-cell lymphoma [Recovered/Resolved]
